FAERS Safety Report 21666074 (Version 1)
Quarter: 2022Q4

REPORT INFORMATION
  Report Type: Report from Study
  Country: PH (occurrence: PH)
  Receive Date: 20221201
  Receipt Date: 20221201
  Transmission Date: 20230113
  Serious: Yes (Death)
  Sender: FDA-Public Use
  Company Number: PH-002147023-NVSC2022PH278679

PATIENT
  Age: 42 Year
  Sex: Male

DRUGS (1)
  1. NILOTINIB [Suspect]
     Active Substance: NILOTINIB
     Indication: Product used for unknown indication
     Dosage: 200 MG, OTHER (TAKE 2 TABS BEFORE BFAST, 2 TABS BEFORE DINNER)
     Route: 048

REACTIONS (2)
  - Death [Fatal]
  - Product prescribing error [Unknown]
